FAERS Safety Report 13921299 (Version 5)
Quarter: 2017Q4

REPORT INFORMATION
  Report Type: Spontaneous
  Country: JP (occurrence: JP)
  Receive Date: 20170830
  Receipt Date: 20171121
  Transmission Date: 20180320
  Serious: Yes (Death, Life-Threatening, Hospitalization, Other)
  Sender: FDA-Public Use
  Company Number: JP-PFIZER INC-2017368133

PATIENT
  Age: 87 Year
  Sex: Male
  Weight: 55 kg

DRUGS (12)
  1. LACTEC G [Concomitant]
     Active Substance: CALCIUM CHLORIDE\POTASSIUM CHLORIDE\SODIUM CHLORIDE\SODIUM LACTATE\SORBITOL
     Dosage: 1000 ML, DAILY
     Dates: start: 20151202
  2. DISOPYRAMIDE [Suspect]
     Active Substance: DISOPYRAMIDE
     Dosage: 100 MG, 3X/DAY
     Route: 048
     Dates: end: 20151201
  3. LACTEC G [Concomitant]
     Active Substance: CALCIUM CHLORIDE\POTASSIUM CHLORIDE\SODIUM CHLORIDE\SODIUM LACTATE\SORBITOL
     Dosage: 1500 ML, DAILY
     Dates: start: 20151201, end: 20151201
  4. ALDACTONE A 25MG [Suspect]
     Active Substance: SPIRONOLACTONE
     Dosage: 25 MG, 1X/DAY
     Route: 048
     Dates: end: 20151201
  5. BAYASPIRIN [Concomitant]
     Active Substance: ASPIRIN
     Dosage: 100 MG, 1X/DAY
     Route: 048
     Dates: end: 20151201
  6. BETAHISTINE MESILATE [Concomitant]
     Active Substance: BETAHISTINE MESILATE
     Dosage: 6 MG, 3X/DAY
     Route: 048
     Dates: end: 20151201
  7. RADICUT [Concomitant]
     Active Substance: EDARAVONE
     Dosage: 0.3 MG/ML, 2X/DAY
     Dates: start: 20151202
  8. ELIQUIS [Suspect]
     Active Substance: APIXABAN
     Dosage: 5 MG, 2X/DAY
     Route: 048
     Dates: start: 20151201, end: 20151202
  9. LANIRAPID [Concomitant]
     Active Substance: METILDIGOXIN
     Dosage: 0.1 MG, UNK
     Route: 048
     Dates: end: 20151201
  10. LENDORMIN [Concomitant]
     Active Substance: BROTIZOLAM
     Dosage: 0.25 MG, 1X/DAY
     Route: 048
     Dates: end: 20151130
  11. LOXOPROFEN EMEC [Suspect]
     Active Substance: LOXOPROFEN
     Dosage: 60 MG, AS NEEDED
     Route: 048
     Dates: end: 20151201
  12. RADICUT [Concomitant]
     Active Substance: EDARAVONE
     Dosage: 0.30 MG/ML, UNK
     Dates: start: 20151201, end: 20151201

REACTIONS (7)
  - Ventricular tachycardia [Fatal]
  - Acute myocardial infarction [Fatal]
  - Ventricular fibrillation [Fatal]
  - Mitral valve incompetence [Not Recovered/Not Resolved]
  - Fall [Recovered/Resolved]
  - Loss of consciousness [Recovered/Resolved]
  - Cyanosis [Fatal]

NARRATIVE: CASE EVENT DATE: 20151201
